FAERS Safety Report 9283904 (Version 2)
Quarter: 2013Q3

REPORT INFORMATION
  Report Type: Spontaneous
  Country: US (occurrence: US)
  Receive Date: 20130510
  Receipt Date: 20130715
  Transmission Date: 20140515
  Serious: Yes (Disabling, Other)
  Sender: FDA-Public Use
  Company Number: US-BRISTOL-MYERS SQUIBB COMPANY-18867663

PATIENT
  Age: 66 Year
  Sex: Female

DRUGS (12)
  1. BYDUREON [Suspect]
     Dosage: 1DF-1 DOSE?DURATION- MORE THAN 4 WEEKS
     Route: 058
     Dates: start: 20130308, end: 20130415
  2. ZYRTEC [Concomitant]
  3. VITAMIN D3 [Concomitant]
     Dosage: 1DF = 2000UNITS
  4. DOCUSATE SODIUM [Concomitant]
  5. FLOVENT [Concomitant]
  6. AMARYL [Concomitant]
  7. MOTRIN [Concomitant]
  8. LEVOTHYROXINE [Concomitant]
  9. LISINOPRIL [Concomitant]
  10. METFORMIN [Concomitant]
  11. FISH OIL [Concomitant]
  12. ZANTAC [Concomitant]

REACTIONS (1)
  - Pancreatitis [Unknown]
